FAERS Safety Report 25070780 (Version 2)
Quarter: 2025Q2

REPORT INFORMATION
  Report Type: Spontaneous
  Country: US (occurrence: US)
  Receive Date: 20250312
  Receipt Date: 20250414
  Transmission Date: 20250717
  Serious: No
  Sender: SANOFI AVENTIS
  Company Number: US-SA-2025SA072929

PATIENT
  Age: 48 Year
  Sex: Male

DRUGS (2)
  1. DUPIXENT [Suspect]
     Active Substance: DUPILUMAB
     Indication: Dermatitis atopic
     Route: 058
     Dates: start: 202502, end: 202502
  2. DUPIXENT [Suspect]
     Active Substance: DUPILUMAB
     Dosage: 300 MG, QOW
     Route: 058
     Dates: start: 2025

REACTIONS (4)
  - Skin reaction [Unknown]
  - Skin swelling [Unknown]
  - Dermatitis atopic [Unknown]
  - Injection site reaction [Unknown]

NARRATIVE: CASE EVENT DATE: 20250101
